FAERS Safety Report 16818151 (Version 1)
Quarter: 2019Q3

REPORT INFORMATION
  Report Type: Spontaneous
  Country: US (occurrence: US)
  Receive Date: 20190917
  Receipt Date: 20190917
  Transmission Date: 20191005
  Serious: No
  Sender: FDA-Public Use
  Company Number: US-PERRIGO-19US004772

PATIENT
  Age: 61 Year
  Sex: Male
  Weight: 102.04 kg

DRUGS (3)
  1. PERCOCET                           /00446701/ [Concomitant]
     Active Substance: ACETAMINOPHEN\OXYCODONE HYDROCHLORIDE\OXYCODONE TEREPHTHALATE
     Indication: BREAKTHROUGH PAIN
     Dosage: UNK
     Route: 065
     Dates: start: 2016
  2. MORPHINE [Concomitant]
     Active Substance: MORPHINE
     Indication: PAIN
     Dosage: UNK
     Route: 050
     Dates: start: 2016
  3. TESTOSTERONE. [Suspect]
     Active Substance: TESTOSTERONE
     Indication: BLOOD TESTOSTERONE DECREASED
     Dosage: 40.5 MG, QAM TO
     Route: 061
     Dates: start: 20181031, end: 20190409

REACTIONS (5)
  - Blood testosterone decreased [Unknown]
  - Asthenia [Not Recovered/Not Resolved]
  - Product administered at inappropriate site [Recovered/Resolved]
  - Fatigue [Not Recovered/Not Resolved]
  - Incorrect dose administered [Recovered/Resolved]

NARRATIVE: CASE EVENT DATE: 20181031
